FAERS Safety Report 18340109 (Version 1)
Quarter: 2020Q4

REPORT INFORMATION
  Report Type: Spontaneous
  Country: IT (occurrence: IT)
  Receive Date: 20201002
  Receipt Date: 20201002
  Transmission Date: 20210113
  Serious: Yes (Hospitalization)
  Sender: FDA-Public Use
  Company Number: IT-BAUSCH-BL-2020-027661

PATIENT
  Age: 54 Year
  Sex: Female

DRUGS (2)
  1. LORAZEPAM. [Suspect]
     Active Substance: LORAZEPAM
     Indication: SCHIZOAFFECTIVE DISORDER
     Dosage: DAILY DOSAGE
     Route: 065
  2. ALPRAZOLAM. [Suspect]
     Active Substance: ALPRAZOLAM
     Indication: SCHIZOAFFECTIVE DISORDER
     Dosage: DAILY DOSAGE
     Route: 065

REACTIONS (2)
  - Drug withdrawal syndrome [Recovering/Resolving]
  - Stress cardiomyopathy [Recovering/Resolving]
